FAERS Safety Report 6530928-8 (Version None)
Quarter: 2010Q1

REPORT INFORMATION
  Report Type: 
  Country: None (occurrence: None)
  Receive Date: 20100108
  Receipt Date: 20090612
  Transmission Date: 20100710
  Serious: No
  Sender: FDA-Public Use
  Company Number: A0791201A

PATIENT
  Age: 75 Year
  Sex: Female

DRUGS (8)
  1. LOVAZA [Suspect]
     Indication: BLOOD CHOLESTEROL INCREASED
     Dosage: 4CAP PER DAY
     Route: 048
     Dates: start: 20090516
  2. CELEBREX [Concomitant]
  3. BENTYL [Concomitant]
  4. ASPIRIN [Concomitant]
  5. TYLENOL (CAPLET) [Concomitant]
  6. CENTRUM SILVER [Concomitant]
  7. PRILOSEC [Concomitant]
  8. MUCINEX [Concomitant]

REACTIONS (5)
  - ABDOMINAL PAIN [None]
  - EAR DISCOMFORT [None]
  - OEDEMA [None]
  - SOMNOLENCE [None]
  - URINE OUTPUT DECREASED [None]
